FAERS Safety Report 12280255 (Version 1)
Quarter: 2016Q2

REPORT INFORMATION
  Report Type: Spontaneous
  Country: US (occurrence: US)
  Receive Date: 20160419
  Receipt Date: 20160419
  Transmission Date: 20160815
  Serious: No
  Sender: FDA-Public Use
  Company Number: US-009507513-1604USA010626

PATIENT
  Sex: Female

DRUGS (1)
  1. NEXPLANON [Suspect]
     Active Substance: ETONOGESTREL
     Dosage: 1 DF, UNK (68 MG 1 ROD I EVERY 3 YEARS)
     Route: 059
     Dates: start: 2015

REACTIONS (3)
  - Haemorrhage [Unknown]
  - Muscle spasms [Unknown]
  - Incorrect drug administration duration [Unknown]
